FAERS Safety Report 16130263 (Version 1)
Quarter: 2019Q1

REPORT INFORMATION
  Report Type: Spontaneous
  Country: IT (occurrence: IT)
  Receive Date: 20190328
  Receipt Date: 20190328
  Transmission Date: 20190418
  Serious: Yes (Hospitalization)
  Sender: FDA-Public Use
  Company Number: PHHY2019IT061032

PATIENT
  Age: 48 Year
  Sex: Female

DRUGS (2)
  1. SOLU-MEDROL [Suspect]
     Active Substance: METHYLPREDNISOLONE SODIUM SUCCINATE
     Indication: MYELITIS
     Dosage: 1 G, QD HIGH-DOSE
     Route: 042
     Dates: start: 20161212, end: 20161216
  2. METHYLPREDNISOLONE. [Suspect]
     Active Substance: METHYLPREDNISOLONE
     Indication: MYELITIS
     Dosage: HIGH-DOSE
     Route: 042

REACTIONS (8)
  - Chest discomfort [Unknown]
  - Blood pressure increased [Recovered/Resolved]
  - Malaise [Unknown]
  - Sinus bradycardia [Recovered/Resolved]
  - Asthenia [Unknown]
  - Weight increased [Unknown]
  - Dyspnoea [Unknown]
  - Fluid retention [Unknown]

NARRATIVE: CASE EVENT DATE: 20161216
